FAERS Safety Report 4952183-2 (Version None)
Quarter: 2006Q1

REPORT INFORMATION
  Report Type: 
  Country: None (occurrence: None)
  Receive Date: 20060323
  Receipt Date: 20060320
  Transmission Date: 20060701
  Serious: Yes (Hospitalization)
  Sender: FDA-Public Use
  Company Number: PHNU2006DE01376

PATIENT
  Sex: Male

DRUGS (7)
  1. RISPERDAL [Suspect]
     Dosage: 6 MG/DAY
     Route: 048
     Dates: start: 20050810, end: 20050822
  2. RISPERDAL [Suspect]
     Dosage: 5 MG/DAY
     Route: 048
     Dates: start: 20050823, end: 20050824
  3. RISPERDAL [Suspect]
     Dosage: 4 MG/DAY
     Route: 048
     Dates: start: 20050825, end: 20050828
  4. CLOZAPINE [Suspect]
     Indication: SCHIZOPHRENIA
     Dosage: 25 MG/DAY
     Route: 048
     Dates: start: 20050824, end: 20050824
  5. CLOZAPINE [Suspect]
     Dosage: 50 MG/DAY
     Route: 048
     Dates: start: 20050825, end: 20050825
  6. CLOZAPINE [Suspect]
     Dosage: 75 MG/DAY
     Route: 048
     Dates: start: 20050826, end: 20050826
  7. CLOZAPINE [Suspect]
     Dosage: 50 MG/DAY
     Route: 048
     Dates: start: 20050827, end: 20050827

REACTIONS (10)
  - C-REACTIVE PROTEIN INCREASED [None]
  - CATATONIA [None]
  - CHILLS [None]
  - DELIRIUM [None]
  - DRUG INTERACTION [None]
  - HYPERTHERMIA [None]
  - SALIVARY HYPERSECRETION [None]
  - SOMNOLENCE [None]
  - SOPOR [None]
  - STUPOR [None]
